FAERS Safety Report 5091822-5 (Version None)
Quarter: 2006Q3

REPORT INFORMATION
  Report Type: 
  Country: None (occurrence: None)
  Receive Date: 20060829
  Receipt Date: 20060620
  Transmission Date: 20061208
  Serious: No
  Sender: FDA-Public Use
  Company Number: US-BRISTOL-MYERS SQUIBB COMPANY-13417373

PATIENT
  Sex: Male

DRUGS (3)
  1. ERBITUX [Suspect]
     Indication: COLON CANCER METASTATIC
  2. PREDNISONE TAB [Suspect]
  3. TETRACYCLINE [Concomitant]

REACTIONS (2)
  - CARCINOEMBRYONIC ANTIGEN INCREASED [None]
  - RASH [None]
